FAERS Safety Report 13358243 (Version 1)
Quarter: 2017Q1

REPORT INFORMATION
  Report Type: Spontaneous
  Country: US (occurrence: US)
  Receive Date: 20170321
  Receipt Date: 20170321
  Transmission Date: 20170429
  Serious: Yes (Other)
  Sender: FDA-Public Use
  Company Number: None

PATIENT
  Age: 64 Year
  Sex: Female
  Weight: 63.45 kg

DRUGS (1)
  1. OXY IR [Suspect]
     Active Substance: OXYCODONE HYDROCHLORIDE
     Indication: PAIN
     Dosage: ?          OTHER FREQUENCY:Q4H;?
     Route: 048
     Dates: start: 20170206, end: 20170315

REACTIONS (1)
  - Lethargy [None]

NARRATIVE: CASE EVENT DATE: 20170215
